FAERS Safety Report 9607416 (Version 1)
Quarter: 2013Q4

REPORT INFORMATION
  Report Type: Spontaneous
  Country: US (occurrence: None)
  Receive Date: 20131007
  Receipt Date: 20131007
  Transmission Date: 20140711
  Serious: Yes (Disabling, Other)
  Sender: FDA-Public Use
  Company Number: 1309-1242

PATIENT
  Age: 70 Year
  Sex: Male

DRUGS (2)
  1. EYLEA [Suspect]
     Indication: AGE-RELATED MACULAR DEGENERATION
     Dosage: 2 MG, 1 IN 1 M, INTRAVITREAL
     Dates: start: 20120123
  2. AVASTIN OS (BEVACIZUMAB) [Concomitant]

REACTIONS (3)
  - Endophthalmitis [None]
  - Visual acuity reduced [None]
  - Intraocular pressure decreased [None]
